FAERS Safety Report 6317520-5 (Version None)
Quarter: 2009Q3

REPORT INFORMATION
  Report Type: 
  Country: None (occurrence: None)
  Receive Date: 20090820
  Receipt Date: 20090820
  Transmission Date: 20100115
  Serious: Yes (Other)
  Sender: FDA-Public Use
  Company Number: None

PATIENT
  Sex: Female
  Weight: 69.8539 kg

DRUGS (8)
  1. LISINOPRIL AND HYDROCHLOROTHIAZIDE [Suspect]
     Indication: HYPOTENSION
     Dosage: 20MG - 12.5MG ONCE DAILY ORAL
     Route: 048
  2. METFORMIN HCL [Concomitant]
  3. GLYBURIDE [Concomitant]
  4. ASPIRIN [Concomitant]
  5. ZOCOR [Concomitant]
  6. FEMARA [Concomitant]
  7. LEXAPRO [Concomitant]
  8. LANTUS [Concomitant]

REACTIONS (1)
  - COUGH [None]
